FAERS Safety Report 25600348 (Version 1)
Quarter: 2025Q3

REPORT INFORMATION
  Report Type: Spontaneous
  Country: GB (occurrence: GB)
  Receive Date: 20250724
  Receipt Date: 20250724
  Transmission Date: 20251020
  Serious: Yes (Other)
  Sender: TEVA
  Company Number: None

PATIENT
  Sex: Male

DRUGS (2)
  1. TRIMETHOPRIM [Suspect]
     Active Substance: TRIMETHOPRIM
     Indication: Product used for unknown indication
     Dosage: FOR 7 DAYS
     Route: 065
     Dates: start: 20240417
  2. METHOTREXATE [Concomitant]
     Active Substance: METHOTREXATE
     Indication: Rheumatoid arthritis

REACTIONS (8)
  - Epistaxis [Unknown]
  - Medication error [Unknown]
  - Haemoglobin decreased [Unknown]
  - Neutropenia [Unknown]
  - Headache [Unknown]
  - Dyspnoea [Unknown]
  - Thrombocytopenia [Unknown]
  - Asthenia [Unknown]

NARRATIVE: CASE EVENT DATE: 20240430
